FAERS Safety Report 11054611 (Version 3)
Quarter: 2015Q2

REPORT INFORMATION
  Report Type: Spontaneous
  Country: SE (occurrence: SE)
  Receive Date: 20150422
  Receipt Date: 20150429
  Transmission Date: 20150821
  Serious: Yes (Hospitalization)
  Sender: FDA-Public Use
  Company Number: SE-TEVA-557174ISR

PATIENT
  Age: 72 Year
  Sex: Female

DRUGS (3)
  1. LOSARTAN + HYDROKLORTIAZID [Suspect]
     Active Substance: HYDROCHLOROTHIAZIDE\LOSARTAN
  2. LASIX [Suspect]
     Active Substance: FUROSEMIDE
     Route: 065
  3. ATENOLOL. [Suspect]
     Active Substance: ATENOLOL

REACTIONS (2)
  - Bradycardia [Unknown]
  - Hypokalaemia [Unknown]
